FAERS Safety Report 4688299-8 (Version None)
Quarter: 2005Q2

REPORT INFORMATION
  Report Type: 
  Country: None (occurrence: None)
  Receive Date: 20050610
  Receipt Date: 20050310
  Transmission Date: 20051028
  Serious: Yes (Hospitalization, Disabling)
  Sender: FDA-Public Use
  Company Number: US-MERCK-0503USA02052

PATIENT
  Age: 55 Year
  Sex: Female
  Weight: 59 kg

DRUGS (9)
  1. VIOXX [Suspect]
     Indication: PSORIATIC ARTHROPATHY
     Route: 048
     Dates: start: 19990917, end: 20040610
  2. ZANTAC [Concomitant]
     Route: 065
  3. PREVACID [Concomitant]
     Route: 065
  4. LIPITOR [Concomitant]
     Route: 065
     Dates: start: 19990620, end: 20040610
  5. [THERAPY UNSPECIFIED] [Concomitant]
     Route: 065
  6. [THERAPY UNSPECIFIED] [Concomitant]
     Route: 065
  7. VASOTEC [Concomitant]
     Route: 065
     Dates: start: 19910123
  8. TENORMIN [Concomitant]
     Route: 065
     Dates: start: 19991220
  9. PROBENECID [Concomitant]
     Route: 065

REACTIONS (6)
  - CARDIAC DISORDER [None]
  - DYSPEPSIA [None]
  - EMOTIONAL DISTRESS [None]
  - HAEMORRHOIDS [None]
  - LUNG DISORDER [None]
  - MYOCARDIAL INFARCTION [None]
